FAERS Safety Report 5781092-4 (Version None)
Quarter: 2008Q2

REPORT INFORMATION
  Report Type: 
  Country: None (occurrence: None)
  Receive Date: 20080620
  Receipt Date: 20080616
  Transmission Date: 20081010
  Serious: Yes (Death)
  Sender: FDA-Public Use
  Company Number: US-GENENTECH-262846

PATIENT
  Sex: Male
  Weight: 60.92 kg

DRUGS (5)
  1. BEVACIZUMAB [Suspect]
     Indication: TONGUE NEOPLASM MALIGNANT STAGE UNSPECIFIED
     Dosage: 610 MG, Q2W
     Route: 042
     Dates: start: 20080415
  2. ERLOTINIB [Suspect]
     Indication: TONGUE NEOPLASM MALIGNANT STAGE UNSPECIFIED
     Dosage: 50 MG, QD
     Route: 048
     Dates: start: 20080211
  3. CISPLATIN [Concomitant]
     Indication: TONGUE NEOPLASM MALIGNANT STAGE UNSPECIFIED
     Dosage: 49 MG, 1/WEEK
     Route: 042
     Dates: start: 20080415, end: 20080503
  4. DEXAMETHASONE TAB [Concomitant]
     Indication: TONGUE NEOPLASM MALIGNANT STAGE UNSPECIFIED
     Dosage: 20 MG, UNK
     Route: 042
     Dates: start: 20080415, end: 20080603
  5. RADIATION THERAPY [Concomitant]
     Indication: TONGUE NEOPLASM MALIGNANT STAGE UNSPECIFIED
     Dosage: 70 GY, IN 35 TREATMENTS
     Dates: start: 20080415, end: 20080605

REACTIONS (1)
  - DEATH [None]
